FAERS Safety Report 4399086-2 (Version None)
Quarter: 2004Q2

REPORT INFORMATION
  Report Type: 
  Country: None (occurrence: None)
  Receive Date: 20040621
  Receipt Date: 20031219
  Transmission Date: 20050107
  Serious: Yes (Death)
  Sender: FDA-Public Use
  Company Number: 2012628

PATIENT
  Age: 45 Year
  Sex: Male
  Weight: 127 kg

DRUGS (3)
  1. OXYCONTIN [Suspect]
  2. CARBAMAZEPINE [Suspect]
  3. NICOTINE [Suspect]

REACTIONS (1)
  - ACCIDENTAL OVERDOSE [None]
